FAERS Safety Report 9115154 (Version 5)
Quarter: 2013Q3

REPORT INFORMATION
  Report Type: Spontaneous
  Country: US (occurrence: US)
  Receive Date: 20130225
  Receipt Date: 20130805
  Transmission Date: 20140515
  Serious: Yes (Death, Hospitalization)
  Sender: FDA-Public Use
  Company Number: US-INCYTE CORPORATION-2013IN000342

PATIENT
  Age: 79 Year
  Sex: Male

DRUGS (11)
  1. JAKAFI [Suspect]
     Indication: MYELOFIBROSIS
     Dosage: 15 MG, BID
     Route: 048
     Dates: start: 20111223
  2. JAKAFI [Suspect]
     Dosage: 5 MG, BID
     Route: 048
     Dates: start: 201204, end: 20130215
  3. PROSCAR [Concomitant]
  4. LEXAPRO [Concomitant]
  5. ALLOPURINOL [Concomitant]
  6. BACTRIM DS [Concomitant]
  7. OMEPRAZOLE [Concomitant]
  8. LUNESTA [Concomitant]
  9. ZOLOFT [Concomitant]
  10. XANAX [Concomitant]
  11. EXJADE [Concomitant]

REACTIONS (5)
  - Acute leukaemia [Fatal]
  - Pneumonia [Unknown]
  - Local swelling [Unknown]
  - Abdominal distension [Unknown]
  - Pancytopenia [Unknown]
